FAERS Safety Report 12398112 (Version 1)
Quarter: 2016Q2

REPORT INFORMATION
  Report Type: Spontaneous
  Country: VN (occurrence: VN)
  Receive Date: 20160524
  Receipt Date: 20160524
  Transmission Date: 20160815
  Serious: Yes (Death, Other)
  Sender: FDA-Public Use
  Company Number: VN-ASTRAZENECA-2016SE53379

PATIENT
  Age: 66 Year
  Sex: Male

DRUGS (3)
  1. ENOXAPARINE [Suspect]
     Active Substance: ENOXAPARIN
     Indication: ACUTE CORONARY SYNDROME
     Route: 058
     Dates: start: 20160503, end: 20160506
  2. ASPIRIN. [Suspect]
     Active Substance: ASPIRIN
     Indication: CORONARY ARTERY DISEASE
     Route: 048
     Dates: end: 20160506
  3. BRILINTA [Suspect]
     Active Substance: TICAGRELOR
     Indication: CORONARY ARTERY DISEASE
     Route: 048
     Dates: end: 20160506

REACTIONS (4)
  - Acute coronary syndrome [Unknown]
  - Haemorrhage [Fatal]
  - Circulatory collapse [Fatal]
  - Vascular stent thrombosis [Unknown]

NARRATIVE: CASE EVENT DATE: 201605
